FAERS Safety Report 9291263 (Version 1)
Quarter: 2013Q2

REPORT INFORMATION
  Report Type: Spontaneous
  Country: US (occurrence: US)
  Receive Date: 20130515
  Receipt Date: 20130515
  Transmission Date: 20140414
  Serious: No
  Sender: FDA-Public Use
  Company Number: US-TEVA-405169USA

PATIENT
  Age: 22 Year
  Sex: Male
  Weight: 45.4 kg

DRUGS (1)
  1. PROAIR HFA [Suspect]
     Indication: EMPHYSEMA
     Dates: start: 20130510

REACTIONS (1)
  - Dyspnoea [Unknown]
